FAERS Safety Report 9528272 (Version 2)
Quarter: 2013Q4

REPORT INFORMATION
  Report Type: Spontaneous
  Country: US (occurrence: US)
  Receive Date: 20130917
  Receipt Date: 20131015
  Transmission Date: 20140711
  Serious: No
  Sender: FDA-Public Use
  Company Number: US-009507513-1309USA006244

PATIENT
  Sex: 0

DRUGS (1)
  1. LOSARTAN POTASSIUM TABLETS [Suspect]
     Indication: HYPERTENSION
     Dosage: UNKNOWN

REACTIONS (1)
  - Adverse drug reaction [Unknown]
